FAERS Safety Report 9065389 (Version 2)
Quarter: 2013Q1

REPORT INFORMATION
  Report Type: Spontaneous
  Country: BE (occurrence: BE)
  Receive Date: 20130214
  Receipt Date: 20130225
  Transmission Date: 20140127
  Serious: Yes (Life-Threatening, Hospitalization, Other)
  Sender: FDA-Public Use
  Company Number: BE-ASTRAZENECA-2011SE17233

PATIENT
  Age: 22194 Day
  Sex: Male
  Weight: 50 kg

DRUGS (1)
  1. SEROQUEL [Suspect]
     Indication: ABNORMAL BEHAVIOUR
     Route: 048
     Dates: start: 20100819, end: 20100825

REACTIONS (1)
  - Epilepsy [Recovered/Resolved]
